FAERS Safety Report 5497587-7 (Version None)
Quarter: 2007Q4

REPORT INFORMATION
  Report Type: 
  Country: None (occurrence: None)
  Receive Date: 20071025
  Receipt Date: 20061212
  Transmission Date: 20080405
  Serious: Yes (Disabling)
  Sender: FDA-Public Use
  Company Number: A0631335A

PATIENT
  Age: 12 Year
  Sex: Male

DRUGS (5)
  1. ADVAIR DISKUS 100/50 [Suspect]
     Indication: ASTHMA
     Dosage: 1PUFF TWICE PER DAY
     Route: 055
     Dates: start: 20061116, end: 20061201
  2. ALLEGRA [Suspect]
     Dosage: 60MG TWICE PER DAY
     Route: 048
     Dates: start: 20061116, end: 20061201
  3. VENTOLIN HFA [Concomitant]
  4. SINGULAIR [Concomitant]
  5. NASONEX [Concomitant]

REACTIONS (4)
  - ANGIOEDEMA [None]
  - CHEST DISCOMFORT [None]
  - PAIN IN EXTREMITY [None]
  - SCROTAL PAIN [None]
